FAERS Safety Report 6747820-6 (Version None)
Quarter: 2010Q2

REPORT INFORMATION
  Report Type: 
  Country: None (occurrence: None)
  Receive Date: 20100528
  Receipt Date: 20100518
  Transmission Date: 20101027
  Serious: Yes (Other)
  Sender: FDA-Public Use
  Company Number: FR-WATSON-2010-07114

PATIENT
  Age: 45 Year
  Sex: Female

DRUGS (1)
  1. LORATADINE [Suspect]
     Indication: NASAL CONGESTION
     Dosage: 10 MG, SINGLE

REACTIONS (3)
  - PRESYNCOPE [None]
  - TORSADE DE POINTES [None]
  - VENTRICULAR TACHYCARDIA [None]
